FAERS Safety Report 8812066 (Version 3)
Quarter: 2012Q4

REPORT INFORMATION
  Report Type: 
  Country: JP (occurrence: JP)
  Receive Date: 20120927
  Receipt Date: 20121029
  Transmission Date: 20130627
  Serious: Yes (Death, Hospitalization)
  Sender: FDA-Public Use
  Company Number: JP-ROCHE-1135689

PATIENT
  Age: 67 Year
  Sex: Male
  Weight: 58 kg

DRUGS (7)
  1. AVASTIN [Suspect]
     Indication: RECTAL CANCER
     Route: 041
     Dates: start: 20110127, end: 20110729
  2. XELODA [Suspect]
     Indication: RECTAL CANCER
     Route: 048
  3. OXALIPLATIN [Concomitant]
     Indication: RECTAL CANCER
     Route: 041
     Dates: start: 20110127, end: 20110729
  4. 5-FU [Concomitant]
     Indication: RECTAL CANCER
     Route: 040
     Dates: start: 20110127, end: 20110729
  5. 5-FU [Concomitant]
     Indication: RECTAL CANCER
     Dosage: Dosage is uncertain.
     Route: 041
     Dates: start: 20110127, end: 20110729
  6. ISOVORIN [Concomitant]
     Indication: RECTAL CANCER
     Route: 041
     Dates: start: 20110127, end: 20110729
  7. CALCIUM LEVOFOLINATE [Concomitant]

REACTIONS (3)
  - Enterovesical fistula [Not Recovered/Not Resolved]
  - Pyelonephritis [Not Recovered/Not Resolved]
  - Rectal cancer [Fatal]
